FAERS Safety Report 13641971 (Version 2)
Quarter: 2017Q2

REPORT INFORMATION
  Report Type: Spontaneous
  Country: IN (occurrence: IN)
  Receive Date: 20170612
  Receipt Date: 20170614
  Transmission Date: 20170830
  Serious: Yes (Other)
  Sender: FDA-Public Use
  Company Number: IN-JNJFOC-20170608782

PATIENT
  Age: 54 Year
  Sex: Male

DRUGS (1)
  1. IXAROLA [Suspect]
     Active Substance: RIVAROXABAN
     Indication: VENOUS OCCLUSION
     Route: 048

REACTIONS (2)
  - Dizziness [Unknown]
  - Asphyxia [Unknown]

NARRATIVE: CASE EVENT DATE: 20170519
